FAERS Safety Report 5918993-X (Version None)
Quarter: 2008Q4

REPORT INFORMATION
  Report Type: 
  Country: None (occurrence: None)
  Receive Date: 20081015
  Receipt Date: 20081007
  Transmission Date: 20090506
  Serious: Yes (Hospitalization)
  Sender: FDA-Public Use
  Company Number: JP-ABBOTT-08P-087-0481214-00

PATIENT
  Age: 75 Year
  Sex: Male

DRUGS (16)
  1. LEUPROLIDE ACETATE [Suspect]
     Indication: PROSTATE CANCER STAGE IV
     Route: 058
     Dates: start: 20080715, end: 20080715
  2. LEUPROLIDE ACETATE [Suspect]
     Dates: start: 20080422, end: 20080422
  3. LEUPROLIDE ACETATE [Suspect]
     Dates: start: 20080205, end: 20080205
  4. LEUPROLIDE ACETATE [Suspect]
     Dates: start: 20071113, end: 20071113
  5. LEUPROLIDE ACETATE [Suspect]
     Dates: start: 20070821, end: 20070821
  6. LEUPROLIDE ACETATE [Suspect]
     Dates: start: 20070529, end: 20070529
  7. LEUPROLIDE ACETATE [Suspect]
     Dates: start: 20080306, end: 20080306
  8. LEUPROLIDE ACETATE [Suspect]
     Dates: start: 20061212, end: 20061212
  9. LEUPROLIDE ACETATE [Suspect]
     Dates: start: 20060822, end: 20060822
  10. PIOGLITAZONE HYDROCHLORIDE [Concomitant]
     Indication: DIABETES MELLITUS
     Route: 048
     Dates: start: 20080612
  11. BICALUTAMIDE [Concomitant]
     Indication: PROSTATE CANCER STAGE IV
     Route: 048
     Dates: end: 20080304
  12. GLYBURIDE [Concomitant]
     Indication: DIABETES MELLITUS
     Route: 048
     Dates: end: 20080416
  13. ACARBOSE [Concomitant]
     Indication: DIABETES MELLITUS
     Route: 048
     Dates: end: 20080416
  14. GLIMEPIRIDE [Concomitant]
     Indication: DIABETES MELLITUS
     Route: 048
     Dates: start: 20080417
  15. MIGLITOL [Concomitant]
     Indication: DIABETES MELLITUS
     Route: 048
     Dates: start: 20080417
  16. BUFFERIN [Concomitant]
     Indication: PROPHYLAXIS
     Route: 048
     Dates: start: 20080417

REACTIONS (3)
  - INJECTION SITE INDURATION [None]
  - PNEUMONIA [None]
  - PROSTATIC SPECIFIC ANTIGEN INCREASED [None]
